FAERS Safety Report 4283998-4 (Version None)
Quarter: 2004Q1

REPORT INFORMATION
  Report Type: 
  Country: None (occurrence: None)
  Receive Date: 20040130
  Receipt Date: 20040113
  Transmission Date: 20041129
  Serious: Yes (Hospitalization, Other)
  Sender: FDA-Public Use
  Company Number: USA031254938

PATIENT
  Age: 51 Year
  Sex: Female
  Weight: 80 kg

DRUGS (4)
  1. ZYPREXA [Suspect]
     Indication: ANXIETY
     Dosage: 20 MG
     Dates: start: 20020201
  2. ZYPREXA [Suspect]
     Indication: DEPRESSION
     Dosage: 20 MG
     Dates: start: 20020201
  3. DEPAKOTE [Concomitant]
  4. TRILEPTAL [Concomitant]

REACTIONS (3)
  - AKATHISIA [None]
  - DRUG ABUSER [None]
  - INTENTIONAL OVERDOSE [None]
